FAERS Safety Report 8534483-2 (Version None)
Quarter: 2012Q3

REPORT INFORMATION
  Report Type: 
  Country: None (occurrence: None)
  Receive Date: 20120712
  Receipt Date: 20120706
  Transmission Date: 20120928
  Serious: Yes (Death, Hospitalization)
  Sender: FDA-Public Use
  Company Number: 136262

PATIENT
  Age: 59 Year
  Sex: Male
  Weight: 72 kg

DRUGS (1)
  1. LEUCOVORIN CALCIUM [Suspect]
     Indication: COLORECTAL CANCER METASTATIC
     Dosage: 400MG/M2 INTRAVENOUSLY ON DAY NOE OF EACH
     Dates: start: 20120425, end: 20120524

REACTIONS (5)
  - ANAEMIA [None]
  - FATIGUE [None]
  - PNEUMONIA [None]
  - SEPSIS [None]
  - DIARRHOEA [None]
